FAERS Safety Report 8810690 (Version 1)
Quarter: 2012Q4

REPORT INFORMATION
  Report Type: Spontaneous
  Country: US (occurrence: None)
  Receive Date: 20120924
  Receipt Date: 20120924
  Transmission Date: 20130627
  Serious: Yes (Other)
  Sender: FDA-Public Use
  Company Number: None

PATIENT
  Sex: Female

DRUGS (1)
  1. MICARDIS HCT [Suspect]
     Indication: AFIB
     Route: 048
     Dates: start: 20120723

REACTIONS (4)
  - Tablet physical issue [None]
  - Product blister packaging issue [None]
  - Drug ineffective [None]
  - Product quality issue [None]
